FAERS Safety Report 22690468 (Version 27)
Quarter: 2025Q3

REPORT INFORMATION
  Report Type: Report from Study
  Country: US (occurrence: US)
  Receive Date: 20230711
  Receipt Date: 20250923
  Transmission Date: 20251020
  Serious: Yes (Other)
  Sender: TAKEDA
  Company Number: US-TAKEDA-2021TUS036334

PATIENT
  Age: 42 Year
  Sex: Male
  Weight: 98 kg

DRUGS (29)
  1. HUMAN IMMUNOGLOBULIN G [Suspect]
     Active Substance: HUMAN IMMUNOGLOBULIN G
     Indication: Multifocal motor neuropathy
     Dosage: 180 GRAM, Q4WEEKS
  2. HUMAN IMMUNOGLOBULIN G [Suspect]
     Active Substance: HUMAN IMMUNOGLOBULIN G
  3. BENADRYL [Suspect]
     Active Substance: DIPHENHYDRAMINE HYDROCHLORIDE
     Indication: Product used for unknown indication
  4. POISON IVY [Suspect]
     Active Substance: TOXICODENDRON RADICANS LEAF
     Indication: Product used for unknown indication
  5. DIPHENHYDRAMINE [Concomitant]
     Active Substance: DIPHENHYDRAMINE
  6. SOOLANTRA [Concomitant]
     Active Substance: IVERMECTIN
  7. KETOCONAZOLE [Concomitant]
     Active Substance: KETOCONAZOLE
  8. SODIUM CHLORIDE [Concomitant]
     Active Substance: SODIUM CHLORIDE
  9. EPINEPHRINE [Concomitant]
     Active Substance: EPINEPHRINE
  10. AMLODIPINE BESYLATE [Concomitant]
     Active Substance: AMLODIPINE BESYLATE
  11. NURTEC ODT [Concomitant]
     Active Substance: RIMEGEPANT SULFATE
  12. ZYRTEC [Concomitant]
     Active Substance: CETIRIZINE HYDROCHLORIDE
  13. PFIZER-BIONTECH COVID-19 VACCINE [Concomitant]
     Active Substance: TOZINAMERAN
  14. ACETAMINOPHEN [Concomitant]
     Active Substance: ACETAMINOPHEN
  15. PROZAC [Concomitant]
     Active Substance: FLUOXETINE HYDROCHLORIDE
  16. SODIUM CHLORIDE [Concomitant]
     Active Substance: SODIUM CHLORIDE
  17. HEPARIN [Concomitant]
     Active Substance: HEPARIN SODIUM
  18. LIDOCAINE [Concomitant]
     Active Substance: LIDOCAINE
  19. IBUPROFEN [Concomitant]
     Active Substance: IBUPROFEN
  20. SUMATRIPTAN SUCCINATE [Concomitant]
     Active Substance: SUMATRIPTAN SUCCINATE
  21. OXYCODONE AND ACETAMINOPHEN [Concomitant]
     Active Substance: ACETAMINOPHEN\OXYCODONE HYDROCHLORIDE
  22. Lmx [Concomitant]
  23. WELLBUTRIN SR [Concomitant]
     Active Substance: BUPROPION HYDROCHLORIDE
  24. DIPHENHYDRAMINE HYDROCHLORIDE [Concomitant]
     Active Substance: DIPHENHYDRAMINE HYDROCHLORIDE
  25. CETIRIZINE HYDROCHLORIDE [Concomitant]
     Active Substance: CETIRIZINE HYDROCHLORIDE
  26. PREGABALIN [Concomitant]
     Active Substance: PREGABALIN
  27. BUSPIRONE HCL [Concomitant]
     Active Substance: BUSPIRONE HYDROCHLORIDE
  28. TRIAMCINOLONE ACETONIDE [Concomitant]
     Active Substance: TRIAMCINOLONE ACETONIDE
  29. ZEPBOUND [Concomitant]
     Active Substance: TIRZEPATIDE

REACTIONS (48)
  - Multifocal motor neuropathy [Unknown]
  - Haemolytic anaemia [Unknown]
  - Musculoskeletal discomfort [Unknown]
  - Tooth fracture [Unknown]
  - Root canal infection [Unknown]
  - Exposure to toxic agent [Recovered/Resolved]
  - Mental disorder [Unknown]
  - Foot fracture [Unknown]
  - Sciatica [Unknown]
  - COVID-19 [Unknown]
  - Therapeutic product effect delayed [Unknown]
  - Infusion related reaction [Unknown]
  - Bronchitis [Not Recovered/Not Resolved]
  - Onychophagia [Unknown]
  - Paranasal sinus discomfort [Unknown]
  - Tooth infection [Unknown]
  - Nasopharyngitis [Not Recovered/Not Resolved]
  - Product dose omission issue [Unknown]
  - Product prescribing issue [Unknown]
  - Dermatitis contact [Unknown]
  - Sinus congestion [Unknown]
  - Productive cough [Unknown]
  - Lumbar radiculopathy [Unknown]
  - Peripheral swelling [Recovered/Resolved]
  - Infusion site mass [Unknown]
  - Injection site mass [Unknown]
  - Hypoaesthesia [Unknown]
  - Musculoskeletal stiffness [Unknown]
  - Dermatitis allergic [Unknown]
  - Feeling abnormal [Unknown]
  - Influenza [Recovering/Resolving]
  - Rash pruritic [Recovered/Resolved]
  - Muscular weakness [Unknown]
  - Infusion site discomfort [Unknown]
  - Injection site pain [Unknown]
  - Infusion site pruritus [Unknown]
  - Pain in extremity [Recovering/Resolving]
  - Erythema [Recovered/Resolved]
  - Paraesthesia [Unknown]
  - Back pain [Recovered/Resolved]
  - Myalgia [Unknown]
  - Infusion site pain [Unknown]
  - Nausea [Unknown]
  - Migraine [Unknown]
  - Headache [Unknown]
  - Fatigue [Recovering/Resolving]
  - Hypopnoea [Unknown]
  - Palpitations [Unknown]

NARRATIVE: CASE EVENT DATE: 20230706
